FAERS Safety Report 18758509 (Version 1)
Quarter: 2021Q1

REPORT INFORMATION
  Report Type: Spontaneous
  Country: US (occurrence: US)
  Receive Date: 20210120
  Receipt Date: 20210120
  Transmission Date: 20210419
  Serious: Yes (Death, Other)
  Sender: FDA-Public Use
  Company Number: US-ALXN-A202100525

PATIENT
  Sex: Female

DRUGS (2)
  1. SOLIRIS [Suspect]
     Active Substance: ECULIZUMAB
     Indication: OFF LABEL USE
  2. SOLIRIS [Suspect]
     Active Substance: ECULIZUMAB
     Indication: RENAL DISORDER
     Dosage: UNK
     Route: 065

REACTIONS (4)
  - Renal disorder [Fatal]
  - Off label use [Unknown]
  - Thrombotic thrombocytopenic purpura [Fatal]
  - Atypical haemolytic uraemic syndrome [Fatal]
